FAERS Safety Report 5983727-X (Version None)
Quarter: 2008Q4

REPORT INFORMATION
  Report Type: 
  Country: None (occurrence: None)
  Receive Date: 20081126
  Receipt Date: 20071017
  Transmission Date: 20090506
  Serious: Yes (Hospitalization)
  Sender: FDA-Public Use
  Company Number: 2007BH008412

PATIENT
  Age: 68 Year
  Sex: Male

DRUGS (1)
  1. DIANEAL [Suspect]
     Indication: PERITONEAL DIALYSIS
     Dosage: UNK; IP
     Route: 033
     Dates: end: 20070101

REACTIONS (2)
  - CATHETER SITE INFECTION [None]
  - PERITONITIS BACTERIAL [None]
